FAERS Safety Report 7792664-X (Version None)
Quarter: 2011Q4

REPORT INFORMATION
  Report Type: 
  Country: None (occurrence: None)
  Receive Date: 20111003
  Receipt Date: 20110922
  Transmission Date: 20120403
  Serious: Yes (Hospitalization)
  Sender: FDA-Public Use
  Company Number: FR-ASTRAZENECA-2011SE57671

PATIENT
  Age: 988 Month
  Sex: Female

DRUGS (9)
  1. NEXIUM [Suspect]
     Route: 048
     Dates: start: 20110405
  2. REPAGLINIDE [Concomitant]
     Indication: RENAL FAILURE
     Dates: start: 20110407
  3. CLINDAMYCIN HCL [Concomitant]
     Indication: LARYNGITIS
     Route: 048
     Dates: start: 20110413, end: 20110420
  4. GLUCOPHAGE [Concomitant]
     Indication: RENAL FAILURE
     Dates: end: 20110407
  5. ARICEPT [Concomitant]
  6. NICARDIPINE HCL [Concomitant]
  7. OMEPRAZOLE [Suspect]
     Route: 048
     Dates: end: 20110404
  8. FERROUS FUMARATE [Concomitant]
  9. ESCITALOPRAM OXALATE [Concomitant]

REACTIONS (2)
  - APLASIA PURE RED CELL [None]
  - ANAEMIA [None]
